FAERS Safety Report 9257561 (Version 1)
Quarter: 2013Q1

REPORT INFORMATION
  Report Type: Spontaneous
  Country: US (occurrence: None)
  Receive Date: 20121212
  Receipt Date: 20121212
  Transmission Date: 20140127
  Serious: No
  Sender: FDA-Public Use
  Company Number: 1208USA006368

PATIENT
  Age: 59 Year
  Sex: Male
  Weight: 78 kg

DRUGS (1)
  1. VICTRELIS (BOCEPREVIR) [Suspect]
     Route: 048

REACTIONS (9)
  - White blood cell disorder [None]
  - Weight decreased [None]
  - Red blood cell count decreased [None]
  - Fatigue [None]
  - Dyspnoea [None]
  - Nervousness [None]
  - Anxiety [None]
  - Irritability [None]
  - Mood swings [None]
